FAERS Safety Report 6111768-0 (Version None)
Quarter: 2009Q1

REPORT INFORMATION
  Report Type: 
  Country: None (occurrence: None)
  Receive Date: 20090311
  Receipt Date: 20080923
  Transmission Date: 20090719
  Serious: No
  Sender: FDA-Public Use
  Company Number: US-TYCO HEALTHCARE/MALLINCKRODT-T200801562

PATIENT

DRUGS (3)
  1. RESTORIL [Suspect]
     Indication: INSOMNIA
  2. HYZAAR                             /01284801/ [Concomitant]
  3. DILTIAZEM [Concomitant]

REACTIONS (1)
  - MALAISE [None]
